FAERS Safety Report 6969700-3 (Version None)
Quarter: 2010Q3

REPORT INFORMATION
  Report Type: 
  Country: None (occurrence: None)
  Receive Date: 20100908
  Receipt Date: 20100901
  Transmission Date: 20110219
  Serious: Yes (Hospitalization)
  Sender: FDA-Public Use
  Company Number: US-BIOGENIDEC-2010BI015801

PATIENT
  Age: 50 Year
  Sex: Female

DRUGS (1)
  1. TYSABRI [Suspect]
     Indication: MULTIPLE SCLEROSIS
     Route: 042
     Dates: start: 20100413, end: 20100701

REACTIONS (7)
  - BALANCE DISORDER [None]
  - DEPRESSION [None]
  - DRUG INEFFECTIVE [None]
  - EYE MOVEMENT DISORDER [None]
  - HYPOAESTHESIA [None]
  - MIGRAINE [None]
  - PAIN [None]
